FAERS Safety Report 19199254 (Version 1)
Quarter: 2021Q2

REPORT INFORMATION
  Report Type: Other
  Country: CN (occurrence: CN)
  Receive Date: 20210430
  Receipt Date: 20210430
  Transmission Date: 20210717
  Serious: Yes (Other)
  Sender: FDA-Public Use
  Company Number: CN-ROCHE-2815043

PATIENT

DRUGS (1)
  1. CAPECITABINE. [Suspect]
     Active Substance: CAPECITABINE
     Indication: GASTRIC CANCER
     Route: 048

REACTIONS (4)
  - Gastrointestinal toxicity [Unknown]
  - Anaemia [Unknown]
  - Thrombocytopenia [Unknown]
  - Neutropenia [Unknown]
